FAERS Safety Report 12498088 (Version 1)
Quarter: 2016Q2

REPORT INFORMATION
  Report Type: Report from Study
  Country: US (occurrence: US)
  Receive Date: 20160626
  Receipt Date: 20160626
  Transmission Date: 20160815
  Serious: Yes (Other)
  Sender: FDA-Public Use
  Company Number: US-AMGEN-USASL2016080696

PATIENT
  Age: 76 Year
  Sex: Female

DRUGS (2)
  1. DEXAMETHASONE. [Concomitant]
     Active Substance: DEXAMETHASONE
     Dosage: UNK
  2. KYPROLIS [Suspect]
     Active Substance: CARFILZOMIB
     Indication: PLASMA CELL MYELOMA
     Dosage: UNK UNK, 2 TIMES/WK
     Route: 065
     Dates: start: 201508

REACTIONS (9)
  - Abnormal behaviour [Unknown]
  - Loss of consciousness [Unknown]
  - Arthritis [Unknown]
  - Weight decreased [Unknown]
  - Fall [Unknown]
  - Nasopharyngitis [Unknown]
  - Overdose [Unknown]
  - Decreased appetite [Unknown]
  - Asthenia [Unknown]
